FAERS Safety Report 7506775-7 (Version None)
Quarter: 2011Q2

REPORT INFORMATION
  Report Type: 
  Country: None (occurrence: None)
  Receive Date: 20110526
  Receipt Date: 20110513
  Transmission Date: 20111010
  Serious: Yes (Hospitalization)
  Sender: FDA-Public Use
  Company Number: A0778092A

PATIENT
  Age: 67 Year
  Sex: Male

DRUGS (1)
  1. AVANDIA [Suspect]
     Indication: DIABETES MELLITUS
     Route: 048
     Dates: start: 20060726, end: 20070501

REACTIONS (10)
  - CHEST PAIN [None]
  - ABDOMINAL DISCOMFORT [None]
  - DYSPNOEA [None]
  - CARDIAC DISORDER [None]
  - HYPERTENSION [None]
  - DEPRESSION [None]
  - MYOCARDIAL INFARCTION [None]
  - CARDIAC FAILURE CONGESTIVE [None]
  - BACK PAIN [None]
  - ASTHENIA [None]
